FAERS Safety Report 24682584 (Version 2)
Quarter: 2024Q4

REPORT INFORMATION
  Report Type: Report from Study
  Country: CO (occurrence: CO)
  Receive Date: 20241130
  Receipt Date: 20241223
  Transmission Date: 20250114
  Serious: Yes (Hospitalization)
  Sender: ABBVIE
  Company Number: CO-ABBVIE-6021730

PATIENT
  Age: 76 Year
  Sex: Male

DRUGS (2)
  1. VENCLEXTA [Suspect]
     Active Substance: VENETOCLAX
     Indication: Acute myeloid leukaemia
     Dosage: FORM STRENGTH: 100 MILLIGRAM,  LAST ADMIN DATE- 2024
     Route: 048
     Dates: start: 20240501
  2. VENCLEXTA [Suspect]
     Active Substance: VENETOCLAX
     Indication: Acute myeloid leukaemia
     Dosage: 400 MILLIGRAM,  FORM STRENGTH: 100 MILLIGRAM
     Route: 048
     Dates: start: 20241201, end: 20241206

REACTIONS (9)
  - Discouragement [Recovering/Resolving]
  - Haemoglobin decreased [Unknown]
  - Abdominal discomfort [Recovering/Resolving]
  - Platelet count decreased [Unknown]
  - Constipation [Recovered/Resolved]
  - Pain [Recovering/Resolving]
  - Diarrhoea [Recovering/Resolving]
  - Splenomegaly [Unknown]
  - Fluid retention [Unknown]

NARRATIVE: CASE EVENT DATE: 20241101
